FAERS Safety Report 10744120 (Version 1)
Quarter: 2015Q1

REPORT INFORMATION
  Report Type: Spontaneous
  Country: US (occurrence: None)
  Receive Date: 20150126
  Receipt Date: 20150126
  Transmission Date: 20150721
  Serious: Yes (Hospitalization, Other)
  Sender: FDA-Public Use
  Company Number: 2015SCAL000004

PATIENT
  Age: 46 Year
  Sex: Male

DRUGS (2)
  1. CLONIDINE HYDROCHLORIDE. [Suspect]
     Active Substance: CLONIDINE HYDROCHLORIDE
     Indication: HYPERTENSION
     Dosage: 0.3 MG, TOOK TWO SERIAL DOSES, ORAL
     Route: 048
  2. YOHIMBINE [Suspect]
     Active Substance: YOHIMBINE
     Indication: ERECTILE DYSFUNCTION

REACTIONS (8)
  - Hypertensive crisis [None]
  - Headache [None]
  - Hyperhidrosis [None]
  - Paradoxical drug reaction [None]
  - Withdrawal hypertension [None]
  - Drug interaction [None]
  - Drug ineffective [None]
  - Extra dose administered [None]
